FAERS Safety Report 5894377-8 (Version None)
Quarter: 2008Q3

REPORT INFORMATION
  Report Type: 
  Country: None (occurrence: None)
  Receive Date: 20080922
  Receipt Date: 20080910
  Transmission Date: 20090109
  Serious: No
  Sender: FDA-Public Use
  Company Number: 20074264

PATIENT
  Sex: Male

DRUGS (1)
  1. LIORESAL [Suspect]
     Indication: MUSCLE SPASTICITY
     Dosage: MCG, DAILY, INTRATHECAL
     Route: 037

REACTIONS (6)
  - ANXIETY [None]
  - INCORRECT DRUG ADMINISTRATION RATE [None]
  - MUSCLE SPASMS [None]
  - MUSCLE TWITCHING [None]
  - PRURITUS GENERALISED [None]
  - WITHDRAWAL SYNDROME [None]
